FAERS Safety Report 15809004 (Version 1)
Quarter: 2019Q1

REPORT INFORMATION
  Report Type: Spontaneous
  Country: SE (occurrence: SE)
  Receive Date: 20190110
  Receipt Date: 20190110
  Transmission Date: 20190417
  Serious: Yes (Hospitalization, Other)
  Sender: FDA-Public Use
  Company Number: SE-ELI_LILLY_AND_COMPANY-SE201901003076

PATIENT
  Age: 66 Year
  Sex: Female

DRUGS (2)
  1. OLUMIANT [Suspect]
     Active Substance: BARICITINIB
     Indication: RHEUMATOID ARTHRITIS
     Dosage: 4 MG, UNKNOWN
     Route: 065
     Dates: start: 20180220, end: 20181227
  2. PREDNISOLON [PREDNISOLONE SODIUM PHOSPHATE] [Concomitant]
     Dosage: 7.5 MG, UNKNOWN
     Route: 065
     Dates: start: 20140919

REACTIONS (1)
  - Meningoencephalitis herpetic [Recovering/Resolving]

NARRATIVE: CASE EVENT DATE: 20180903
